FAERS Safety Report 7491063-8 (Version None)
Quarter: 2011Q2

REPORT INFORMATION
  Report Type: 
  Country: None (occurrence: None)
  Receive Date: 20110519
  Receipt Date: 20110513
  Transmission Date: 20111010
  Serious: Yes (Hospitalization)
  Sender: FDA-Public Use
  Company Number: US-ROCHE-731981

PATIENT
  Sex: Male
  Weight: 76.3 kg

DRUGS (19)
  1. FOLIC ACID [Concomitant]
     Dates: start: 20100625
  2. IMODIUM MULTI-SYMPTOM RELIEF [Concomitant]
     Dates: start: 20070101
  3. PACLITAXEL [Suspect]
     Route: 042
     Dates: start: 20100702, end: 20100702
  4. CALCIUM CARBONATE [Concomitant]
     Dates: start: 20100629
  5. CARBOPLATIN [Suspect]
     Route: 042
     Dates: start: 20100810, end: 20100921
  6. EMEND [Concomitant]
     Dates: start: 20100703
  7. OMEPRAZOLE [Concomitant]
     Dates: start: 20090101
  8. PACLITAXEL [Suspect]
     Route: 042
     Dates: start: 20100810, end: 20100921
  9. CARBOPLATIN [Suspect]
     Dosage: DOSE: 6 AUC.
     Route: 042
     Dates: start: 20100702, end: 20100702
  10. TEMAZ [Concomitant]
     Dates: start: 20100625
  11. MAGNESIUM [Concomitant]
     Dates: start: 20100629
  12. REGLAN [Concomitant]
     Dates: start: 20100725
  13. BEVACIZUMAB [Suspect]
     Route: 042
     Dates: start: 20100702, end: 20100702
  14. PROMETHAZINE [Concomitant]
     Dates: start: 20100618
  15. FENTANYL [Concomitant]
     Dates: start: 20101012
  16. IRINATOLON [Concomitant]
     Dates: start: 20100615
  17. VITAMIN B-12 [Concomitant]
  18. CELEXA [Concomitant]
     Dates: start: 20100629
  19. DEXAMETHASONE [Concomitant]
     Dates: start: 20100701

REACTIONS (4)
  - DIVERTICULITIS [None]
  - SMALL INTESTINAL OBSTRUCTION [None]
  - METASTATIC NEOPLASM [None]
  - LARGE INTESTINE PERFORATION [None]
